FAERS Safety Report 7476303-3 (Version None)
Quarter: 2011Q2

REPORT INFORMATION
  Report Type: 
  Country: None (occurrence: None)
  Receive Date: 20110510
  Receipt Date: 20110510
  Transmission Date: 20111010
  Serious: No
  Sender: FDA-Public Use
  Company Number: None

PATIENT
  Sex: Female
  Weight: 74.8435 kg

DRUGS (1)
  1. PROZAC [Suspect]
     Indication: MIGRAINE PROPHYLAXIS
     Dosage: 20MG PROZAC ONE DAILY ORAL
     Route: 048
     Dates: start: 20090601

REACTIONS (3)
  - AKATHISIA [None]
  - MUSCLE TWITCHING [None]
  - MUSCLE SPASMS [None]
